FAERS Safety Report 9017082 (Version 3)
Quarter: 2013Q4

REPORT INFORMATION
  Report Type: Report from Study
  Country: AT (occurrence: AT)
  Receive Date: 20130117
  Receipt Date: 20131121
  Transmission Date: 20140711
  Serious: Yes (Hospitalization)
  Sender: FDA-Public Use
  Company Number: PHHO2011AT10133

PATIENT
  Sex: 0

DRUGS (3)
  1. PROGRAF [Suspect]
     Indication: RENAL TRANSPLANT
     Dosage: PRN BID
     Route: 048
     Dates: start: 20110221
  2. MYFORTIC [Suspect]
     Indication: RENAL TRANSPLANT
     Dosage: PRN BID
     Route: 048
     Dates: start: 20110221
  3. PREDNISOLON [Concomitant]
     Indication: RENAL TRANSPLANT
     Dosage: PRN QD
     Route: 048
     Dates: start: 20110221

REACTIONS (1)
  - Bronchitis [Recovered/Resolved]
